FAERS Safety Report 12738713 (Version 1)
Quarter: 2016Q3

REPORT INFORMATION
  Report Type: Spontaneous
  Country: US (occurrence: US)
  Receive Date: 20160913
  Receipt Date: 20160913
  Transmission Date: 20161109
  Serious: No
  Sender: FDA-Public Use
  Company Number: US-B.I. PHARMACEUTICALS,INC./RIDGEFIELD-2016-BI-57803BP

PATIENT
  Sex: Female

DRUGS (8)
  1. ATORVASTATIN [Concomitant]
     Active Substance: ATORVASTATIN
     Indication: HYPERTENSION
     Dosage: 20 MG
     Route: 048
     Dates: start: 2011
  2. COMBIVENT [Suspect]
     Active Substance: ALBUTEROL SULFATE\IPRATROPIUM BROMIDE
     Indication: CHRONIC OBSTRUCTIVE PULMONARY DISEASE
     Dosage: DOSE PER APPLICATION: 20 MCG / 100 MCG; DAILY DOSE: 80 MCG / 400 MCG
     Route: 055
     Dates: start: 2011
  3. ESTRADIOL. [Concomitant]
     Active Substance: ESTRADIOL
     Indication: HOT FLUSH
     Dosage: 0.0071 MG
     Route: 061
     Dates: start: 1991
  4. LOSARTAN. [Concomitant]
     Active Substance: LOSARTAN
     Indication: BLOOD CHOLESTEROL INCREASED
     Dosage: 100 MG
     Route: 048
     Dates: start: 2011
  5. SINGULAIR [Concomitant]
     Active Substance: MONTELUKAST SODIUM
     Indication: PRODUCT USED FOR UNKNOWN INDICATION
     Dosage: 10 MG
     Route: 048
  6. CETIRIZINE [Concomitant]
     Active Substance: CETIRIZINE HYDROCHLORIDE
     Indication: ASTHMA
     Dosage: 10 MG
     Route: 048
     Dates: start: 2011
  7. ALBUTEROL INHALER [Concomitant]
     Active Substance: ALBUTEROL
     Indication: ASTHMA
     Dosage: FORMULATION: INHALER
     Route: 055
  8. ADVAIR HFA [Concomitant]
     Active Substance: FLUTICASONE PROPIONATE\SALMETEROL XINAFOATE
     Indication: ASTHMA
     Dosage: DOSE PER APPLICATION: 500 MCG/50 MCG; DAILY DOSE: 1000 MCG/ 100 MCG
     Route: 055

REACTIONS (3)
  - Unevaluable event [Not Recovered/Not Resolved]
  - Drug ineffective [Not Recovered/Not Resolved]
  - Total lung capacity abnormal [Not Recovered/Not Resolved]

NARRATIVE: CASE EVENT DATE: 2015
